FAERS Safety Report 5810950-7 (Version None)
Quarter: 2008Q3

REPORT INFORMATION
  Report Type: 
  Country: None (occurrence: None)
  Receive Date: 20080716
  Receipt Date: 20080709
  Transmission Date: 20090109
  Serious: Yes (Other)
  Sender: FDA-Public Use
  Company Number: PHHY2008CA13740

PATIENT
  Sex: Female

DRUGS (1)
  1. SANDOSTATIN LAR [Suspect]
     Indication: GASTRINOMA
     Dosage: 20 MG EVERY 4 WEEKS
     Route: 030
     Dates: start: 20070601

REACTIONS (3)
  - BRONCHITIS [None]
  - GASTROINTESTINAL DISORDER [None]
  - HEART RATE INCREASED [None]
